FAERS Safety Report 5057019-X (Version None)
Quarter: 2006Q3

REPORT INFORMATION
  Report Type: 
  Country: None (occurrence: None)
  Receive Date: 20060721
  Receipt Date: 20060710
  Transmission Date: 20061208
  Serious: Yes (Hospitalization)
  Sender: FDA-Public Use
  Company Number: FR-AVENTIS-200612488FR

PATIENT
  Age: 72 Year
  Sex: Female

DRUGS (11)
  1. LASILIX [Suspect]
     Indication: CARDIAC FAILURE
     Route: 048
  2. ATARAX [Suspect]
     Indication: ANXIETY
  3. DIGOXIN [Suspect]
     Indication: ATRIAL FIBRILLATION
     Route: 048
  4. DIGOXIN [Suspect]
     Indication: ATRIAL FLUTTER
     Route: 048
  5. PREVISCAN [Suspect]
     Indication: ATRIAL FIBRILLATION
     Route: 048
  6. PREVISCAN [Suspect]
     Indication: ATRIAL FIBRILLATION
     Route: 048
  7. NOCTRAN [Suspect]
     Indication: SLEEP DISORDER
     Route: 048
  8. CORDARONE [Suspect]
     Indication: ATRIAL FIBRILLATION
     Route: 048
  9. CORDARONE [Suspect]
     Indication: ATRIAL FLUTTER
     Route: 048
  10. SEROPRAM [Concomitant]
  11. PRAZEPAM [Concomitant]

REACTIONS (1)
  - LICHENOID KERATOSIS [None]
